FAERS Safety Report 5112471-6 (Version None)
Quarter: 2006Q3

REPORT INFORMATION
  Report Type: 
  Country: None (occurrence: None)
  Receive Date: 20060922
  Receipt Date: 20050816
  Transmission Date: 20061208
  Serious: No
  Sender: FDA-Public Use
  Company Number: US-BRISTOL-MYERS SQUIBB COMPANY-13079306

PATIENT
  Age: 70 Year
  Sex: Male
  Weight: 91 kg

DRUGS (5)
  1. MEGACE [Suspect]
     Indication: HYPERHIDROSIS
     Route: 048
  2. PRILOSEC [Concomitant]
     Indication: GASTROOESOPHAGEAL REFLUX DISEASE
  3. MULTI-VITAMIN [Concomitant]
  4. GLUCOSAMINE [Concomitant]
  5. CHONDROITIN [Concomitant]

REACTIONS (2)
  - DYSPNOEA [None]
  - HYPERHIDROSIS [None]
